FAERS Safety Report 8681670 (Version 3)
Quarter: 2012Q4

REPORT INFORMATION
  Report Type: 
  Country: US (occurrence: US)
  Receive Date: 20120725
  Receipt Date: 20121010
  Transmission Date: 20130627
  Serious: Yes (Other)
  Sender: FDA-Public Use
  Company Number: US-ASTELLAS-2012US006296

PATIENT
  Age: 53 Year
  Sex: Female
  Weight: 71 kg

DRUGS (10)
  1. PROGRAF [Suspect]
     Indication: RENAL TRANSPLANT
     Dosage: 5 mg, bid
     Route: 048
     Dates: start: 20050619
  2. CELLCEPT                           /01275102/ [Concomitant]
     Indication: RENAL TRANSPLANT
     Dosage: 250 mg, bid
     Route: 048
     Dates: start: 20050619
  3. PREDNISONE [Concomitant]
     Indication: RENAL TRANSPLANT
     Dosage: 10 mg, UID/QD
     Route: 048
     Dates: start: 20050619
  4. PANTOPRAZOLE [Concomitant]
     Indication: GASTROINTESTINAL DISORDER THERAPY
     Dosage: 40 mg, UID/QD
     Route: 048
     Dates: start: 2001
  5. ZOCOR [Concomitant]
     Indication: BLOOD CHOLESTEROL
     Dosage: 20 mg, UID/QD
     Route: 048
     Dates: start: 2001
  6. SULFAMETHOXAZOLE AND TRIMETHOPRIM [Concomitant]
     Indication: ANTIBIOTIC THERAPY
     Dosage: 400 mg/80 mg q M-W-F
     Route: 048
     Dates: start: 20050616
  7. EFFEXOR [Concomitant]
     Indication: ANTIDEPRESSANT THERAPY
     Dosage: 37.5 mg, UID/QD
     Route: 048
  8. METOPROLOL [Concomitant]
     Indication: BLOOD PRESSURE
     Dosage: 50 mg, UID/QD
     Route: 048
     Dates: start: 20050616
  9. GABAPENTIN [Concomitant]
     Indication: NEUROPATHY PERIPHERAL
     Dosage: 300 mg, UID/QD
     Dates: start: 2004
  10. ASPIRIN [Concomitant]
     Indication: ANTICOAGULANT THERAPY
     Dosage: 325 mg, UID/QD
     Route: 048
     Dates: start: 2006

REACTIONS (1)
  - Pancreas transplant [Recovered/Resolved]
